FAERS Safety Report 5894298-0 (Version None)
Quarter: 2008Q3

REPORT INFORMATION
  Report Type: 
  Country: None (occurrence: None)
  Receive Date: 20080923
  Receipt Date: 20080415
  Transmission Date: 20090109
  Serious: No
  Sender: FDA-Public Use
  Company Number: US-ASTRAZENECA-2008UW07821

PATIENT
  Sex: Female

DRUGS (1)
  1. SEROQUEL [Suspect]

REACTIONS (4)
  - INCREASED APPETITE [None]
  - METABOLIC DISORDER [None]
  - SLEEP-RELATED EATING DISORDER [None]
  - WEIGHT INCREASED [None]
